FAERS Safety Report 7537225-2 (Version None)
Quarter: 2011Q2

REPORT INFORMATION
  Report Type: 
  Country: None (occurrence: None)
  Receive Date: 20110524
  Receipt Date: 20110331
  Transmission Date: 20111010
  Serious: No
  Sender: FDA-Public Use
  Company Number: 030439

PATIENT
  Sex: Female

DRUGS (4)
  1. PREDNISONE [Concomitant]
  2. CIMZIA [Suspect]
     Dosage: 400MG 1 1X/2 WEEKS, INDUCTION, 0, 2, 4 SUBCUTANEOUS
     Route: 058
     Dates: start: 20110125, end: 20110228
  3. ETANERCEPT [Concomitant]
  4. HYDROCODONE [Concomitant]

REACTIONS (5)
  - PAIN [None]
  - MUSCULOSKELETAL STIFFNESS [None]
  - FATIGUE [None]
  - SWELLING [None]
  - INFLAMMATION [None]
